FAERS Safety Report 7802905 (Version 4)
Quarter: 2018Q4

REPORT INFORMATION
  Report Type: Spontaneous
  Country: GB (occurrence: NO)
  Receive Date: 20110207
  Receipt Date: 20181107
  Transmission Date: 20190205
  Serious: Yes (Death, Hospitalization, Other)
  Sender: FDA-Public Use
  Company Number: GB-AMGEN-QUU401245

PATIENT
  Age: 70 Year
  Sex: Male

DRUGS (17)
  1. NEULASTA [Suspect]
     Active Substance: PEGFILGRASTIM
     Indication: DIFFUSE LARGE B-CELL LYMPHOMA
     Dosage: UNK
     Route: 065
  2. MITOXANTRONE [Suspect]
     Active Substance: MITOXANTRONE HYDROCHLORIDE
     Indication: PRODUCT USED FOR UNKNOWN INDICATION
     Dosage: UNK UNK, Q3WK
     Route: 065
     Dates: start: 20090611, end: 20090723
  3. CYCLOPHOSPHAMIDE. [Interacting]
     Active Substance: CYCLOPHOSPHAMIDE
     Indication: DIFFUSE LARGE B-CELL LYMPHOMA
     Dosage: UNK  (TOTAL OF 3 TREATMENTS)
     Route: 065
     Dates: start: 20090611, end: 20090723
  4. GARAMYCIN [Concomitant]
     Active Substance: GENTAMICIN SULFATE
     Indication: PNEUMONIA BACTERIAL
     Dosage: UNK
     Route: 042
     Dates: start: 20090916
  5. BENZYLPENICILLIN [Concomitant]
     Active Substance: PENICILLIN G
     Indication: PNEUMONIA BACTERIAL
     Dosage: UNK
     Route: 042
     Dates: start: 20090216
  6. SULFAMETHOXAZOLE/TRIMETHOPRIM [Concomitant]
     Active Substance: SULFAMETHOXAZOLE\TRIMETHOPRIM
     Dosage: UNK
     Dates: start: 20091001
  7. BACTRIM [Concomitant]
     Active Substance: SULFAMETHOXAZOLE\TRIMETHOPRIM
     Dosage: UNK
  8. NOVANTRONE [Concomitant]
     Active Substance: MITOXANTRONE HYDROCHLORIDE
     Indication: DIFFUSE LARGE B-CELL LYMPHOMA
     Dosage: UNK  (TOTAL OF 3 TREATMENTS)
     Dates: start: 20090611, end: 20090723
  9. RITUXIMAB. [Interacting]
     Active Substance: RITUXIMAB
     Indication: PRODUCT USED FOR UNKNOWN INDICATION
     Dosage: UNK  (TOTAL OF 3 TREATMENTS)
     Route: 065
     Dates: start: 20090611, end: 20090723
  10. ETOPOSIDE. [Concomitant]
     Active Substance: ETOPOSIDE
     Indication: DIFFUSE LARGE B-CELL LYMPHOMA
     Dosage: UNK
     Dates: start: 20090909, end: 20090909
  11. CYTARABINE. [Concomitant]
     Active Substance: CYTARABINE
     Dosage: UNK
     Dates: start: 20090909, end: 20090909
  12. DIFLUCAN [Concomitant]
     Active Substance: FLUCONAZOLE
     Dosage: UNK
     Route: 065
     Dates: start: 20090916
  13. SENDOXAN [Concomitant]
     Active Substance: CYCLOPHOSPHAMIDE
     Dosage: UNK
  14. MERONEM [Concomitant]
     Active Substance: MEROPENEM
     Dosage: UNK
     Dates: start: 20090919
  15. MABTHERA [Suspect]
     Active Substance: RITUXIMAB
     Indication: PRODUCT USED FOR UNKNOWN INDICATION
     Dosage: UNK  (TOTAL OF 3 TREATMENTS)
     Route: 065
     Dates: start: 20090611, end: 20090723
  16. PREDNISOLON [Concomitant]
     Active Substance: PREDNISOLONE
     Indication: DIFFUSE LARGE B-CELL LYMPHOMA
     Dosage: UNK  (TOTAL OF 3 TREATMENTS)
     Dates: start: 20090611, end: 20090909
  17. VINCRISTINE [Concomitant]
     Active Substance: VINCRISTINE
     Indication: DIFFUSE LARGE B-CELL LYMPHOMA
     Dosage: UNK UNK, Q3WK
     Dates: start: 20090611, end: 20090723

REACTIONS (4)
  - Chest X-ray abnormal [Fatal]
  - Drug interaction [Unknown]
  - Respiratory failure [Fatal]
  - Pneumonitis [Unknown]

NARRATIVE: CASE EVENT DATE: 20090809
